FAERS Safety Report 5713600-3 (Version None)
Quarter: 2008Q2

REPORT INFORMATION
  Report Type: 
  Country: None (occurrence: None)
  Receive Date: 20080422
  Receipt Date: 20080410
  Transmission Date: 20081010
  Serious: Yes (Hospitalization)
  Sender: FDA-Public Use
  Company Number: US-ELI_LILLY_AND_COMPANY-US200804003021

PATIENT
  Sex: Female

DRUGS (8)
  1. CYMBALTA [Suspect]
     Indication: DEPRESSED MOOD
     Dosage: 1 D/F, UNK
     Dates: start: 20080326, end: 20080331
  2. SYNTHROID [Concomitant]
  3. ASPIRIN [Concomitant]
  4. TOPAMAX [Concomitant]
  5. DDAVP [Concomitant]
  6. SIMVASTATIN [Concomitant]
  7. CLONAZEPAM [Concomitant]
  8. GEODON [Concomitant]

REACTIONS (7)
  - BLOOD PRESSURE DECREASED [None]
  - BLOOD SODIUM DECREASED [None]
  - CATATONIA [None]
  - FATIGUE [None]
  - FEELING ABNORMAL [None]
  - THINKING ABNORMAL [None]
  - TREATMENT NONCOMPLIANCE [None]
